FAERS Safety Report 13600141 (Version 1)
Quarter: 2017Q2

REPORT INFORMATION
  Report Type: Spontaneous
  Country: US (occurrence: US)
  Receive Date: 20170601
  Receipt Date: 20170601
  Transmission Date: 20170830
  Serious: No
  Sender: FDA-Public Use
  Company Number: US-THE MEDICINES COMPANY-US-MDCO-17-00183

PATIENT
  Sex: Male

DRUGS (2)
  1. ORBACTIV [Suspect]
     Active Substance: ORITAVANCIN
     Indication: CELLULITIS
     Dosage: NOT REPORTED
     Route: 041
     Dates: start: 201704, end: 201704
  2. ORBACTIV [Suspect]
     Active Substance: ORITAVANCIN
     Dosage: NOT REPORTED
     Route: 041
     Dates: start: 201704, end: 201704

REACTIONS (3)
  - Arthralgia [Recovered/Resolved]
  - Off label use [Recovered/Resolved]
  - Chest pain [Recovered/Resolved]

NARRATIVE: CASE EVENT DATE: 201704
